FAERS Safety Report 20784386 (Version 2)
Quarter: 2023Q2

REPORT INFORMATION
  Report Type: Spontaneous
  Country: US (occurrence: US)
  Receive Date: 20220504
  Receipt Date: 20230601
  Transmission Date: 20230722
  Serious: Yes (Other)
  Sender: FDA-Public Use
  Company Number: US-PFIZER INC-202200633264

PATIENT
  Age: 59 Year
  Sex: Female
  Weight: 52.62 kg

DRUGS (2)
  1. XELJANZ XR [Suspect]
     Active Substance: TOFACITINIB CITRATE
     Indication: Rheumatoid arthritis
     Dosage: 11 MG, 1X/DAY (SWALLOW IT WITH WATER ONCE A DAY)
     Route: 048
     Dates: start: 20150610
  2. NASACORT [Concomitant]
     Active Substance: TRIAMCINOLONE ACETONIDE
     Dosage: UNK

REACTIONS (6)
  - Ligament rupture [Recovering/Resolving]
  - Drug ineffective [Recovered/Resolved]
  - Gait inability [Recovered/Resolved with Sequelae]
  - Joint stiffness [Recovering/Resolving]
  - Arthritis [Recovered/Resolved]
  - Inappropriate schedule of product administration [Unknown]

NARRATIVE: CASE EVENT DATE: 20210510
